FAERS Safety Report 6310506-6 (Version None)
Quarter: 2009Q3

REPORT INFORMATION
  Report Type: 
  Country: None (occurrence: None)
  Receive Date: 20090814
  Receipt Date: 20090813
  Transmission Date: 20100115
  Serious: No
  Sender: FDA-Public Use
  Company Number: US-B.I. PHARMACEUTICALS,INC./RIDGEFIELD-2009-BP-09592BP

PATIENT
  Sex: Female

DRUGS (3)
  1. SPIRIVA [Suspect]
     Indication: EMPHYSEMA
  2. SYMBICORT [Concomitant]
     Indication: EMPHYSEMA
  3. ALBUTEROL [Concomitant]
     Indication: EMPHYSEMA

REACTIONS (1)
  - DRUG EFFECT DECREASED [None]
